FAERS Safety Report 9553392 (Version 1)
Quarter: 2013Q3

REPORT INFORMATION
  Report Type: Spontaneous
  Country: US (occurrence: None)
  Receive Date: 20130724
  Receipt Date: 20130724
  Transmission Date: 20140515
  Serious: Yes (Other)
  Sender: FDA-Public Use
  Company Number: PHEH2012US021825

PATIENT
  Age: 78 Year
  Sex: Female
  Weight: 68 kg

DRUGS (2)
  1. GLEEVEC [Suspect]
     Route: 048
  2. SPRYCEL (DASATINIB MONOHYDRATE) [Suspect]

REACTIONS (1)
  - Pulmonary oedema [None]
